FAERS Safety Report 9016870 (Version 1)
Quarter: 2013Q1

REPORT INFORMATION
  Report Type: Spontaneous
  Country: US (occurrence: None)
  Receive Date: 20130116
  Receipt Date: 20130116
  Transmission Date: 20140127
  Serious: No
  Sender: FDA-Public Use
  Company Number: US-HORIZON-DUE-0002-2012

PATIENT
  Sex: Male

DRUGS (3)
  1. DUEXIS [Suspect]
     Dosage: 1 DF ONCE A TOTAL,  ORAL
     Route: 048
     Dates: start: 20120110, end: 20120110
  2. ZOCOR [Concomitant]
  3. MULTIVITAMINS [Concomitant]

REACTIONS (3)
  - Dizziness [None]
  - Somnolence [None]
  - Fatigue [None]
